FAERS Safety Report 8761914 (Version 4)
Quarter: 2013Q2

REPORT INFORMATION
  Report Type: Spontaneous
  Country: US (occurrence: US)
  Receive Date: 20120830
  Receipt Date: 20130419
  Transmission Date: 20140414
  Serious: Yes (Life-Threatening, Hospitalization)
  Sender: FDA-Public Use
  Company Number: US-JNJFOC-20120813826

PATIENT
  Age: 78 Year
  Sex: Male

DRUGS (25)
  1. XARELTO [Suspect]
     Indication: CEREBROVASCULAR ACCIDENT PROPHYLAXIS
     Route: 048
     Dates: start: 20120507, end: 20120807
  2. XARELTO [Suspect]
     Indication: ATRIAL FIBRILLATION
     Route: 048
     Dates: start: 20120507, end: 20120807
  3. SAXAGLIPTIN [Suspect]
     Indication: TYPE 2 DIABETES MELLITUS
     Route: 065
     Dates: start: 20110520, end: 20110602
  4. METFORMIN HCL [Suspect]
     Indication: TYPE 2 DIABETES MELLITUS
     Route: 065
     Dates: start: 20110603
  5. METFORMIN HCL [Suspect]
     Indication: TYPE 2 DIABETES MELLITUS
     Route: 065
     Dates: end: 20110603
  6. LANTUS [Suspect]
     Indication: TYPE 2 DIABETES MELLITUS
     Route: 065
     Dates: start: 20110825
  7. LANTUS [Suspect]
     Indication: TYPE 2 DIABETES MELLITUS
     Route: 065
     Dates: start: 20110606, end: 20110825
  8. PLACEBO [Suspect]
     Indication: TYPE 2 DIABETES MELLITUS
     Route: 065
     Dates: start: 20110520, end: 20110602
  9. COLCHICINE [Concomitant]
     Route: 065
     Dates: start: 20120809
  10. ASPIRIN [Concomitant]
  11. EZETIMIBE [Concomitant]
  12. BETA-BLOCKER, NOS [Concomitant]
  13. ANTICOAGULANTS [Concomitant]
     Route: 048
  14. STATIN MEDICATION [Concomitant]
  15. ANGIOTENSIN RECEPTOR BLOCKER NOS [Concomitant]
  16. ALPHA-ADRENOCEPTOR BLOCKING AGENTS [Concomitant]
  17. EXENATIDE [Concomitant]
     Indication: TYPE 2 DIABETES MELLITUS
     Dates: end: 20110524
  18. COLECALCIFEROL [Concomitant]
     Route: 065
     Dates: start: 20120820
  19. AVODART [Concomitant]
     Route: 065
     Dates: start: 20120808
  20. COUMADIN [Concomitant]
     Route: 065
     Dates: start: 20120904
  21. POTASSIUM CHLORIDE [Concomitant]
     Route: 065
     Dates: start: 20120828
  22. ATENOLOL [Concomitant]
     Route: 065
     Dates: start: 20120828
  23. DILTIAZEM [Concomitant]
     Route: 065
     Dates: start: 20120904
  24. CLOPIDOGREL BISULFATE [Concomitant]
     Route: 065
     Dates: start: 20120831
  25. LANOXIN [Concomitant]
     Route: 065
     Dates: start: 20120903

REACTIONS (2)
  - Haematuria [Recovered/Resolved]
  - Renal failure acute [Recovered/Resolved]
